FAERS Safety Report 6132028-8 (Version None)
Quarter: 2009Q1

REPORT INFORMATION
  Report Type: 
  Country: None (occurrence: None)
  Receive Date: 20090325
  Receipt Date: 20090323
  Transmission Date: 20090719
  Serious: Yes (Life-Threatening, Disabling)
  Sender: FDA-Public Use
  Company Number: US-BRISTOL-MYERS SQUIBB COMPANY-14498786

PATIENT
  Age: 67 Year
  Sex: Female

DRUGS (3)
  1. SPRYCEL [Suspect]
     Indication: CHRONIC MYELOID LEUKAEMIA
     Dosage: 1 DF= 100 UNITS NOT SPECIFIED; INTERRUPTED ON 27JAN09; THERAPY DURATION: 6WEEKS.
     Route: 048
     Dates: start: 20081220
  2. ESTROGENIC SUBSTANCE [Concomitant]
  3. NEXIUM [Concomitant]

REACTIONS (1)
  - HEPATITIS ACUTE [None]
